FAERS Safety Report 4308438-8 (Version None)
Quarter: 2004Q1

REPORT INFORMATION
  Report Type: 
  Country: None (occurrence: None)
  Receive Date: 20040301
  Receipt Date: 20040218
  Transmission Date: 20041129
  Serious: Yes (Other)
  Sender: FDA-Public Use
  Company Number: US-BRISTOL-MYERS SQUIBB COMPANY-12510434

PATIENT
  Age: 50 Year
  Sex: Male
  Weight: 65 kg

DRUGS (16)
  1. AMPHOTERICIN B FOR INJECTION [Suspect]
     Indication: FUNGAEMIA
     Route: 042
     Dates: start: 20040213
  2. AMIODARONE HCL [Concomitant]
  3. BENADRYL [Concomitant]
     Indication: PREMEDICATION
     Route: 048
  4. BISACODYL [Concomitant]
  5. DILAUDID [Concomitant]
     Dosage: 0.5 TO 1 MG
  6. ENALAPRIL MALEATE [Concomitant]
  7. INSULIN ASPART [Concomitant]
     Dosage: SLIDING SCALE
  8. NPH INSULIN [Concomitant]
     Dosage: 12 UNITS IN THE MORNING, AND 8 UNITS IN THE EVENING
  9. LEVOFLOXACIN [Concomitant]
  10. MIRTAZAPINE [Concomitant]
     Dosage: EVERY EVENING
  11. REGLAN [Concomitant]
  12. SYNTHROID [Concomitant]
  13. TYLENOL (CAPLET) [Concomitant]
     Indication: PREMEDICATION
     Route: 048
  14. TOPROL-XL [Concomitant]
  15. TPN [Concomitant]
     Dosage: TPN 3 IN 1 INFUSING CENTRALLY
     Route: 042
  16. TRAZODONE HCL [Concomitant]
     Dosage: EVERY EVENING

REACTIONS (2)
  - INJECTION SITE EXTRAVASATION [None]
  - SKIN NECROSIS [None]
